FAERS Safety Report 7866278-7 (Version None)
Quarter: 2011Q4

REPORT INFORMATION
  Report Type: 
  Country: None (occurrence: None)
  Receive Date: 20111028
  Receipt Date: 20110524
  Transmission Date: 20120403
  Serious: No
  Sender: FDA-Public Use
  Company Number: US-GLAXOSMITHKLINE-A0928949A

PATIENT
  Age: 70 Year
  Sex: Female

DRUGS (7)
  1. ADVAIR DISKUS 100/50 [Suspect]
     Indication: CHRONIC OBSTRUCTIVE PULMONARY DISEASE
     Dosage: 1PUFF TWICE PER DAY
     Route: 055
     Dates: start: 20010501
  2. ALBUTEROL [Concomitant]
  3. SPIRIVA [Suspect]
     Dosage: 1PUFF PER DAY
     Dates: start: 20010501
  4. OXYGEN [Concomitant]
  5. LISINOPRIL [Concomitant]
  6. SPIRIVA [Concomitant]
  7. THEOPHYLLINE [Concomitant]

REACTIONS (5)
  - THERAPEUTIC RESPONSE UNEXPECTED [None]
  - DYSPNOEA EXERTIONAL [None]
  - DYSPHONIA [None]
  - DYSPEPSIA [None]
  - GAIT DISTURBANCE [None]
